FAERS Safety Report 5289256-3 (Version None)
Quarter: 2007Q2

REPORT INFORMATION
  Report Type: 
  Country: None (occurrence: None)
  Receive Date: 20070403
  Receipt Date: 20070403
  Transmission Date: 20071010
  Serious: Yes (Death, Hospitalization)
  Sender: FDA-Public Use
  Company Number: None

PATIENT
  Age: 74 Year
  Sex: Male
  Weight: 58.9676 kg

DRUGS (1)
  1. PERGOLIDE MESYLATE [Suspect]

REACTIONS (2)
  - CARDIAC VALVE REPLACEMENT COMPLICATION [None]
  - PHARMACEUTICAL PRODUCT COMPLAINT [None]
